FAERS Safety Report 17966822 (Version 1)
Quarter: 2020Q2

REPORT INFORMATION
  Report Type: Report from Study
  Country: None (occurrence: BR)
  Receive Date: 20200630
  Receipt Date: 20200630
  Transmission Date: 20200714
  Serious: Yes (Disabling)
  Sender: FDA-Public Use
  Company Number: BR-ABBVIE-20K-020-3462554-00

PATIENT
  Sex: Female
  Weight: 76 kg

DRUGS (4)
  1. HUMIRA [Suspect]
     Active Substance: ADALIMUMAB
     Indication: RHEUMATOID ARTHRITIS
     Route: 058
     Dates: start: 20100101, end: 202005
  2. PREDNISONE. [Concomitant]
     Active Substance: PREDNISONE
     Indication: RHEUMATOID ARTHRITIS
     Dosage: AS NEEDED
     Route: 048
  3. CODEINE [Concomitant]
     Active Substance: CODEINE
     Indication: INTERVERTEBRAL DISC PROTRUSION
     Dosage: ONLY USES WHEN NECESSARY
     Route: 048
     Dates: start: 2018
  4. PARACETAMOL [Concomitant]
     Active Substance: ACETAMINOPHEN
     Indication: INTERVERTEBRAL DISC PROTRUSION
     Dosage: AS NEEDED
     Route: 048
     Dates: start: 2018

REACTIONS (4)
  - Therapeutic response shortened [Not Recovered/Not Resolved]
  - Pain in extremity [Not Recovered/Not Resolved]
  - Intervertebral disc protrusion [Not Recovered/Not Resolved]
  - Asthma [Not Recovered/Not Resolved]

NARRATIVE: CASE EVENT DATE: 2014
